FAERS Safety Report 23106722 (Version 1)
Quarter: 2023Q4

REPORT INFORMATION
  Report Type: Spontaneous
  Country: BE (occurrence: BE)
  Receive Date: 20231026
  Receipt Date: 20231026
  Transmission Date: 20240109
  Serious: Yes (Hospitalization, Other)
  Sender: FDA-Public Use
  Company Number: BE-NOVAST LABORATORIES INC.-2023NOV000320

PATIENT
  Age: 71 Year
  Sex: Male

DRUGS (4)
  1. OXALIPLATIN [Suspect]
     Active Substance: OXALIPLATIN
     Indication: Malignant neoplasm of ampulla of Vater
     Dosage: UNK
     Route: 065
  2. LEUCOVORIN CALCIUM [Concomitant]
     Active Substance: LEUCOVORIN CALCIUM
     Indication: Malignant neoplasm of ampulla of Vater
     Dosage: UNK
     Route: 065
  3. FLUOROURACIL [Concomitant]
     Active Substance: FLUOROURACIL
     Indication: Malignant neoplasm of ampulla of Vater
     Dosage: UNK
     Route: 065
  4. IRINOTECAN HYDROCHLORIDE [Concomitant]
     Active Substance: IRINOTECAN HYDROCHLORIDE
     Indication: Malignant neoplasm of ampulla of Vater
     Dosage: UNK
     Route: 065

REACTIONS (3)
  - Peritoneal disorder [Recovered/Resolved]
  - Pleural effusion [Recovered/Resolved]
  - Product use in unapproved indication [Unknown]
